FAERS Safety Report 21681114 (Version 3)
Quarter: 2023Q1

REPORT INFORMATION
  Report Type: Spontaneous
  Country: GB (occurrence: GB)
  Receive Date: 20221205
  Receipt Date: 20230103
  Transmission Date: 20230418
  Serious: Yes (Other)
  Sender: FDA-Public Use
  Company Number: GB-MYLANLABS-2022M1134018

PATIENT
  Sex: Male

DRUGS (1)
  1. CLOZARIL [Suspect]
     Active Substance: CLOZAPINE
     Indication: Schizophrenia
     Dosage: UNK
     Route: 048
     Dates: start: 20200421, end: 20221112

REACTIONS (5)
  - Toxicity to various agents [Unknown]
  - Amphetamines positive [Unknown]
  - Electrolyte imbalance [Not Recovered/Not Resolved]
  - Electrocardiogram QT prolonged [Unknown]
  - Blood potassium decreased [Unknown]
